FAERS Safety Report 4756360-5 (Version None)
Quarter: 2005Q3

REPORT INFORMATION
  Report Type: 
  Country: None (occurrence: None)
  Receive Date: 20050830
  Receipt Date: 20050608
  Transmission Date: 20060218
  Serious: No
  Sender: FDA-Public Use
  Company Number: US-GLAXOSMITHKLINE-A0561813A

PATIENT
  Age: 50 Year
  Sex: Female

DRUGS (3)
  1. WELLBUTRIN XL [Suspect]
     Indication: MENOPAUSAL SYMPTOMS
     Dosage: 150MG PER DAY
     Route: 048
     Dates: start: 20050525
  2. LEVOXYL [Concomitant]
  3. VITAMINS [Concomitant]

REACTIONS (1)
  - ABDOMINAL PAIN [None]
